FAERS Safety Report 8172087-4 (Version None)
Quarter: 2012Q1

REPORT INFORMATION
  Report Type: 
  Country: None (occurrence: None)
  Receive Date: 20120228
  Receipt Date: 20120215
  Transmission Date: 20120608
  Serious: Yes (Other)
  Sender: FDA-Public Use
  Company Number: CA-MYLANLABS-2012S1003609

PATIENT
  Age: 64 Year
  Sex: Female

DRUGS (7)
  1. VENLAFAXINE [Concomitant]
     Dosage: XR
  2. FLUOROURACIL [Suspect]
     Indication: COLORECTAL CANCER METASTATIC
     Dosage: PART OF FOLFIRI CHEMOTHERAPY
     Route: 065
  3. LEUCOVORIN CALCIUM [Concomitant]
     Indication: COLORECTAL CANCER METASTATIC
     Dosage: PART OF FOLFIRI CHEMOTHERAPY
     Route: 065
  4. PHENYTOIN [Interacting]
     Indication: EPILEPSY
     Route: 048
  5. SODIUM DIOCTYL SULFOSUCCINATE [Concomitant]
     Route: 065
  6. DIDROKIT                           /01103501/ [Concomitant]
     Dosage: 1 TABLET DAILY
  7. IRINOTECAN HCL [Concomitant]
     Indication: COLORECTAL CANCER METASTATIC
     Dosage: PART OF FOLFIRI CHEMOTHERAPY
     Route: 065

REACTIONS (8)
  - WALKING DISABILITY [None]
  - TOXICITY TO VARIOUS AGENTS [None]
  - DRUG INTERACTION [None]
  - ATAXIA [None]
  - SOMNOLENCE [None]
  - HYPERREFLEXIA [None]
  - DIZZINESS [None]
  - BALANCE DISORDER [None]
